FAERS Safety Report 6326963-5 (Version None)
Quarter: 2009Q3

REPORT INFORMATION
  Report Type: 
  Country: None (occurrence: None)
  Receive Date: 20090825
  Receipt Date: 20090813
  Transmission Date: 20100115
  Serious: Yes (Other)
  Sender: FDA-Public Use
  Company Number: HQWYE299711MAY06

PATIENT
  Sex: Female
  Weight: 62.65 kg

DRUGS (3)
  1. EFFEXOR [Suspect]
     Indication: DEPRESSION
     Dates: start: 19930101, end: 20040101
  2. EFFEXOR [Suspect]
     Dosage: 75 MG FREQUENCY UNSPECIFIED
     Dates: start: 20060416
  3. EFFEXOR [Suspect]
     Dosage: 100 MG TABLET, DOSE UNSPECIFIED
     Route: 048

REACTIONS (5)
  - ACTIVITIES OF DAILY LIVING IMPAIRED [None]
  - DRUG WITHDRAWAL SYNDROME [None]
  - DRY MOUTH [None]
  - IMPAIRED WORK ABILITY [None]
  - INSOMNIA [None]
